FAERS Safety Report 14343570 (Version 2)
Quarter: 2018Q1

REPORT INFORMATION
  Report Type: Spontaneous
  Country: IT (occurrence: IT)
  Receive Date: 20180102
  Receipt Date: 20180319
  Transmission Date: 20180509
  Serious: Yes (Hospitalization)
  Sender: FDA-Public Use
  Company Number: IT-PFIZER INC-2017552888

PATIENT
  Age: 57 Year
  Sex: Male

DRUGS (3)
  1. TYGACIL [Suspect]
     Active Substance: TIGECYCLINE
     Indication: SEPSIS
     Dosage: 50 MG, 1X/DAY
     Route: 042
     Dates: start: 20171108, end: 20171114
  2. COLIMICINA /00013203/ [Concomitant]
     Active Substance: COLISTIN SULFATE
     Dosage: UNK
     Route: 042
  3. AMPICILLINA E SULBACTAM IBI [Concomitant]
     Active Substance: AMPICILLIN SODIUM\SULBACTAM SODIUM
     Dosage: UNK
     Route: 042

REACTIONS (1)
  - Hypokalaemia [Recovered/Resolved]

NARRATIVE: CASE EVENT DATE: 20171111
